FAERS Safety Report 6956128-5 (Version None)
Quarter: 2010Q3

REPORT INFORMATION
  Report Type: 
  Country: None (occurrence: None)
  Receive Date: 20100830
  Receipt Date: 20091214
  Transmission Date: 20110219
  Serious: No
  Sender: FDA-Public Use
  Company Number: US-BAUSCH-2009BL006589

PATIENT
  Age: 54 Year
  Sex: Male
  Weight: 86 kg

DRUGS (1)
  1. CROMOLYN SODIUM [Suspect]
     Indication: NASAL CONGESTION
     Route: 045
     Dates: start: 20091120, end: 20091123

REACTIONS (1)
  - EPISTAXIS [None]
